FAERS Safety Report 21852270 (Version 1)
Quarter: 2023Q1

REPORT INFORMATION
  Report Type: Other
  Country: DE (occurrence: DE)
  Receive Date: 20230112
  Receipt Date: 20230112
  Transmission Date: 20230418
  Serious: Yes (Disabling, Other)
  Sender: FDA-Public Use
  Company Number: DE-CELLTRION INC.-2023DE000191

PATIENT

DRUGS (15)
  1. RITUXIMAB [Suspect]
     Active Substance: RITUXIMAB
     Indication: Diffuse large B-cell lymphoma
     Dosage: 1ST LINE, R-CHOP
     Dates: start: 20161001, end: 20170101
  2. RITUXIMAB [Suspect]
     Active Substance: RITUXIMAB
     Dosage: 2ND LINE, R-GDP
     Dates: start: 20170801, end: 20170901
  3. RITUXIMAB [Suspect]
     Active Substance: RITUXIMAB
     Dosage: 3RD LINE R-ICE
     Dates: start: 20170901, end: 20171101
  4. RITUXIMAB [Suspect]
     Active Substance: RITUXIMAB
     Dosage: 4TH LINE, R-ICE
     Dates: start: 20200601, end: 20201001
  5. RITUXIMAB [Suspect]
     Active Substance: RITUXIMAB
     Dosage: 5TH LINE, P-BR
     Dates: start: 20201101, end: 20210101
  6. RITUXIMAB [Suspect]
     Active Substance: RITUXIMAB
     Dosage: R-DHAP AND ALLO-SCT
     Dates: start: 20210601, end: 20210730
  7. GEMCITABINE [Suspect]
     Active Substance: GEMCITABINE
     Indication: Diffuse large B-cell lymphoma
     Dosage: 2ND LINE, R-GDP
     Dates: start: 20170801, end: 20170901
  8. PREDNISONE [Suspect]
     Active Substance: PREDNISONE
     Indication: Diffuse large B-cell lymphoma
     Dosage: 2ND LINE, R-GDP
     Dates: start: 20170801, end: 20170901
  9. BENDAMUSTINE [Suspect]
     Active Substance: BENDAMUSTINE
     Indication: Diffuse large B-cell lymphoma
     Dosage: 5TH LINE, P-BR
     Dates: start: 20201101, end: 20210101
  10. DEXAMETHASONE [Suspect]
     Active Substance: DEXAMETHASONE
     Indication: Diffuse large B-cell lymphoma
     Dosage: 2ND LINE, R-GDP
     Dates: start: 20170801, end: 20170901
  11. CISPLATIN\CYTARABINE\DEXAMETHASONE [Suspect]
     Active Substance: CISPLATIN\CYTARABINE\DEXAMETHASONE
     Indication: Diffuse large B-cell lymphoma
     Dosage: R-DHAP AND ALLO-SCT
     Dates: start: 20210601, end: 20210730
  12. CYCLOPHOSPHAMIDE\DOXORUBICIN\PREDNISONE\VINCRISTINE [Suspect]
     Active Substance: CYCLOPHOSPHAMIDE\DOXORUBICIN\PREDNISONE\VINCRISTINE
     Indication: Diffuse large B-cell lymphoma
     Dosage: 1ST LINE, R-CHOP
     Dates: start: 20161001, end: 20170101
  13. POLATUZUMAB VEDOTIN [Suspect]
     Active Substance: POLATUZUMAB VEDOTIN
     Indication: Diffuse large B-cell lymphoma
     Dosage: 5TH LINE, P-BR
     Dates: start: 20201101, end: 20210101
  14. CARBOPLATIN\ETOPOSIDE\IFOSFAMIDE [Suspect]
     Active Substance: CARBOPLATIN\ETOPOSIDE\IFOSFAMIDE
     Indication: Diffuse large B-cell lymphoma
     Dosage: 3RD LINE R-ICE
     Dates: start: 20170901, end: 20171101
  15. RITUXIMAB [Suspect]
     Active Substance: RITUXIMAB
     Dosage: 4TH LINE, R-ICE
     Dates: start: 20200601, end: 20201001

REACTIONS (6)
  - Resorption bone increased [Not Recovered/Not Resolved]
  - Osteolysis [Not Recovered/Not Resolved]
  - Lymphoma [Not Recovered/Not Resolved]
  - Ilium fracture [Not Recovered/Not Resolved]
  - Disease progression [Not Recovered/Not Resolved]
  - Product use issue [Unknown]

NARRATIVE: CASE EVENT DATE: 20170101
